FAERS Safety Report 9630834 (Version 2)
Quarter: 2013Q4

REPORT INFORMATION
  Report Type: Spontaneous
  Country: DE (occurrence: DE)
  Receive Date: 20131018
  Receipt Date: 20131022
  Transmission Date: 20140711
  Serious: Yes (Hospitalization, Disabling, Other)
  Sender: FDA-Public Use
  Company Number: DE-JNJFOC-20131009695

PATIENT
  Age: 75 Year
  Sex: Male
  Weight: 88 kg

DRUGS (12)
  1. XARELTO [Suspect]
     Indication: ATRIAL FIBRILLATION
     Dosage: EVERY MORNING
     Route: 048
     Dates: start: 20130604
  2. XARELTO [Suspect]
     Indication: CEREBROVASCULAR ACCIDENT PROPHYLAXIS
     Dosage: EVERY MORNING
     Route: 048
     Dates: start: 20130604
  3. ALLOPURINOL [Concomitant]
     Route: 065
  4. METOPROLOL SUCCINATE [Concomitant]
     Route: 065
  5. MIANSERIN [Concomitant]
     Dosage: EVERY MORNING
     Route: 065
  6. NOVODIGAL [Concomitant]
     Dosage: EVERY MORNING
     Route: 065
  7. PANTOPRAZOLE [Concomitant]
     Route: 065
  8. RAMIPRIL COMP [Concomitant]
     Dosage: EVERY MORNING
     Route: 065
  9. RAMIPRIL [Concomitant]
     Route: 065
  10. SIMVASTATIN [Concomitant]
     Route: 065
  11. TORASEMIDE [Concomitant]
     Route: 065
  12. SPIRONOLACTON [Concomitant]
     Dosage: EVERY MORNING
     Route: 065

REACTIONS (5)
  - Subdural haematoma [Recovering/Resolving]
  - Hemiparesis [Recovering/Resolving]
  - Gait disturbance [Recovering/Resolving]
  - Fall [Unknown]
  - Thrombocytopenia [Unknown]
